FAERS Safety Report 10164205 (Version 2)
Quarter: 2014Q2

REPORT INFORMATION
  Report Type: Spontaneous
  Country: US (occurrence: US)
  Receive Date: 20140510
  Receipt Date: 20140510
  Transmission Date: 20141212
  Serious: No
  Sender: FDA-Public Use
  Company Number: US-BRISTOL-MYERS SQUIBB COMPANY-19984152

PATIENT
  Age: 62 Year
  Sex: Male
  Weight: 158.73 kg

DRUGS (4)
  1. BYETTA PEN DISPOSABLE [Suspect]
     Indication: TYPE 2 DIABETES MELLITUS
     Route: 058
     Dates: start: 200910
  2. LANTUS [Concomitant]
     Route: 058
  3. REGULAR INSULIN [Concomitant]
     Route: 058
  4. GLUCOPHAGE [Concomitant]
     Route: 048

REACTIONS (3)
  - Product quality issue [Unknown]
  - Drug administered in wrong device [Recovered/Resolved]
  - Incorrect dose administered [Recovered/Resolved]
